FAERS Safety Report 10386588 (Version 1)
Quarter: 2014Q3

REPORT INFORMATION
  Report Type: Spontaneous
  Country: US (occurrence: US)
  Receive Date: 20140815
  Receipt Date: 20140815
  Transmission Date: 20150326
  Serious: No
  Sender: FDA-Public Use
  Company Number: US-ASTRAZENECA-2014SE56496

PATIENT
  Age: 53 Year
  Sex: Female
  Weight: 53.5 kg

DRUGS (1)
  1. ENTOCORT EC [Suspect]
     Active Substance: BUDESONIDE
     Indication: CROHN^S DISEASE
     Route: 048
     Dates: start: 2009

REACTIONS (3)
  - Bladder disorder [Unknown]
  - Cystitis [Unknown]
  - Osteoporosis [Unknown]

NARRATIVE: CASE EVENT DATE: 2012
